FAERS Safety Report 5607296-9 (Version None)
Quarter: 2008Q1

REPORT INFORMATION
  Report Type: 
  Country: None (occurrence: None)
  Receive Date: 20080130
  Receipt Date: 20080122
  Transmission Date: 20080703
  Serious: Yes (Death, Life-Threatening, Other)
  Sender: FDA-Public Use
  Company Number: GB-JNJFOC-20070803899

PATIENT
  Sex: Male
  Weight: 81 kg

DRUGS (5)
  1. REMICADE [Suspect]
     Indication: RHEUMATOID ARTHRITIS
     Route: 042
  2. METHOTREXATE [Concomitant]
  3. VOLTAREN [Concomitant]
  4. NEORAL [Concomitant]
  5. ARTIFICIAL TEARS [Concomitant]

REACTIONS (2)
  - CEREBRAL HAEMORRHAGE [None]
  - GLIOBLASTOMA MULTIFORME [None]
